FAERS Safety Report 20884074 (Version 6)
Quarter: 2023Q1

REPORT INFORMATION
  Report Type: Spontaneous
  Country: CA (occurrence: CA)
  Receive Date: 20220527
  Receipt Date: 20230329
  Transmission Date: 20230417
  Serious: Yes (Death, Other)
  Sender: FDA-Public Use
  Company Number: CA-GlaxoSmithKline-CA2022GSK084848

PATIENT

DRUGS (42)
  1. LAMIVUDINE [Interacting]
     Active Substance: LAMIVUDINE
     Indication: HIV infection
     Dosage: UNK
     Route: 048
  2. LAMIVUDINE [Interacting]
     Active Substance: LAMIVUDINE
     Dosage: UNK
     Route: 065
  3. BUPROPION HYDROCHLORIDE [Interacting]
     Active Substance: BUPROPION HYDROCHLORIDE
     Indication: Bipolar disorder
     Dosage: UNK
     Route: 065
  4. BUPROPION [Interacting]
     Active Substance: BUPROPION
     Indication: Bipolar disorder
     Dosage: UNK
  5. ATAZANAVIR SULFATE [Interacting]
     Active Substance: ATAZANAVIR SULFATE
     Indication: HIV infection
     Dosage: UNK
     Route: 048
  6. ATAZANAVIR SULFATE [Interacting]
     Active Substance: ATAZANAVIR SULFATE
     Dosage: UNK
     Route: 065
  7. ATAZANAVIR SULFATE [Interacting]
     Active Substance: ATAZANAVIR SULFATE
     Dosage: UNK
     Route: 065
  8. CLONAZEPAM [Interacting]
     Active Substance: CLONAZEPAM
     Indication: Bipolar disorder
     Dosage: UNK
     Route: 048
  9. ISENTRESS [Interacting]
     Active Substance: RALTEGRAVIR POTASSIUM
     Indication: HIV infection
     Dosage: UNK , BID 1 IN 12 HOURS
     Route: 048
  10. KALETRA [Interacting]
     Active Substance: LOPINAVIR\RITONAVIR
     Indication: HIV infection
     Dosage: UNK
     Route: 048
  11. KALETRA [Interacting]
     Active Substance: LOPINAVIR\RITONAVIR
     Dosage: UNK
     Route: 065
  12. QUETIAPINE FUMARATE [Interacting]
     Active Substance: QUETIAPINE FUMARATE
     Indication: Bipolar disorder
     Dosage: UNK TABLET
     Route: 048
  13. QUETIAPINE FUMARATE [Interacting]
     Active Substance: QUETIAPINE FUMARATE
     Indication: HIV infection
     Dosage: UNK FILM COATED TABLET
     Route: 048
  14. QUETIAPINE FUMARATE [Interacting]
     Active Substance: QUETIAPINE FUMARATE
     Dosage: UNK
     Route: 048
  15. RALTEGRAVIR [Interacting]
     Active Substance: RALTEGRAVIR
     Indication: HIV infection
     Dosage: UNK MG
     Route: 048
  16. RALTEGRAVIR [Interacting]
     Active Substance: RALTEGRAVIR
     Dosage: UNK
     Route: 065
  17. RALTEGRAVIR [Interacting]
     Active Substance: RALTEGRAVIR
     Dosage: 400 MG
  18. RALTEGRAVIR POTASSIUM [Interacting]
     Active Substance: RALTEGRAVIR POTASSIUM
     Indication: HIV infection
     Dosage: UNK
     Route: 048
  19. RALTEGRAVIR POTASSIUM [Interacting]
     Active Substance: RALTEGRAVIR POTASSIUM
     Dosage: 400 MG, BID
     Route: 048
  20. RALTEGRAVIR POTASSIUM [Interacting]
     Active Substance: RALTEGRAVIR POTASSIUM
     Dosage: 1 DF, BID
     Route: 048
  21. RALTEGRAVIR POTASSIUM [Interacting]
     Active Substance: RALTEGRAVIR POTASSIUM
     Dosage: 400 MG, BID
     Route: 048
  22. RALTEGRAVIR POTASSIUM [Interacting]
     Active Substance: RALTEGRAVIR POTASSIUM
     Dosage: 400 MG, BID (EVERY 12 HOURS)
  23. SERTRALINE HYDROCHLORIDE [Interacting]
     Active Substance: SERTRALINE HYDROCHLORIDE
     Indication: Bipolar disorder
     Dosage: UNK, BID IN 12 HOURS
     Route: 048
  24. SERTRALINE HYDROCHLORIDE [Interacting]
     Active Substance: SERTRALINE HYDROCHLORIDE
     Dosage: UNK
     Route: 065
  25. SERTRALINE HYDROCHLORIDE [Interacting]
     Active Substance: SERTRALINE HYDROCHLORIDE
     Indication: Bipolar disorder
     Dosage: UNK
     Route: 065
  26. SUSTIVA [Interacting]
     Active Substance: EFAVIRENZ
     Indication: Product used for unknown indication
     Dosage: UNK UNK, BID 1IN 12 HOURS
     Route: 048
  27. SUSTIVA [Interacting]
     Active Substance: EFAVIRENZ
     Dosage: UNK
     Route: 065
  28. SUSTIVA [Interacting]
     Active Substance: EFAVIRENZ
     Dosage: 400 MG
     Route: 048
  29. VALPROIC ACID [Interacting]
     Active Substance: VALPROIC ACID
     Indication: Bipolar disorder
     Dosage: UNK
     Route: 065
  30. ZOPICLONE [Interacting]
     Active Substance: ZOPICLONE
     Indication: Bipolar disorder
     Dosage: UNK
     Route: 065
  31. ZOPICLONE [Interacting]
     Active Substance: ZOPICLONE
     Dosage: UNK
     Route: 048
  32. ATAZANAVIR [Suspect]
     Active Substance: ATAZANAVIR
     Indication: HIV infection
     Dosage: UNK
     Route: 048
  33. ATAZANAVIR [Suspect]
     Active Substance: ATAZANAVIR
     Dosage: UNK
     Route: 005
  34. ATAZANAVIR [Suspect]
     Active Substance: ATAZANAVIR
     Dosage: UNK
     Route: 005
  35. QUETIAPINE [Suspect]
     Active Substance: QUETIAPINE
     Indication: Bipolar disorder
     Dosage: UNK
     Route: 048
  36. QUETIAPINE [Suspect]
     Active Substance: QUETIAPINE
     Dosage: UNK
  37. EFAVIRENZ [Suspect]
     Active Substance: EFAVIRENZ
     Indication: HIV infection
     Dosage: 400 MG, BID (EVERY 12 HOURS)
     Route: 048
  38. LOPINAVIR\RITONAVIR [Suspect]
     Active Substance: LOPINAVIR\RITONAVIR
     Indication: Product used for unknown indication
     Dosage: UNK
     Route: 048
  39. VALPROATE SODIUM [Suspect]
     Active Substance: VALPROATE SODIUM
     Indication: Bipolar disorder
     Dosage: UNK
     Route: 065
  40. BUPROPION HYDROBROMIDE [Interacting]
     Active Substance: BUPROPION HYDROBROMIDE
     Indication: Product used for unknown indication
     Dosage: UNK
     Route: 048
  41. ENFUVIRTIDE [Concomitant]
     Active Substance: ENFUVIRTIDE
     Indication: HIV infection
     Dosage: UNK
  42. ENFUVIRTIDE [Concomitant]
     Active Substance: ENFUVIRTIDE
     Indication: Product used for unknown indication
     Dosage: UNK

REACTIONS (7)
  - Depression [Fatal]
  - Loss of personal independence in daily activities [Fatal]
  - Drug interaction [Fatal]
  - Prescribed overdose [Fatal]
  - Intentional product use issue [Fatal]
  - Incorrect route of product administration [Fatal]
  - Product use in unapproved indication [Fatal]
